FAERS Safety Report 6517382-7 (Version None)
Quarter: 2009Q4

REPORT INFORMATION
  Report Type: 
  Country: None (occurrence: None)
  Receive Date: 20091218
  Receipt Date: 20091214
  Transmission Date: 20100525
  Serious: Yes (Hospitalization)
  Sender: FDA-Public Use
  Company Number: 1000010781

PATIENT
  Age: 52 Year
  Sex: Female

DRUGS (7)
  1. LEXAPRO [Suspect]
     Indication: DEPRESSION
     Dosage: 10 MG (10 MG, 1 IN 1 D), ORAL; 20 MG (20 MG, 1 IN 1 D), ORAL
     Route: 048
     Dates: start: 19990101, end: 20091001
  2. LEXAPRO [Suspect]
     Indication: DEPRESSION
     Dosage: 10 MG (10 MG, 1 IN 1 D), ORAL; 20 MG (20 MG, 1 IN 1 D), ORAL
     Route: 048
     Dates: start: 20091001
  3. DEPAKOTE [Suspect]
     Indication: BIPOLAR DISORDER
     Dosage: 1000 MG (500 MG, 2 IN 1 D), ORAL
     Route: 048
     Dates: start: 20091101
  4. PROMETHAZINE [Suspect]
     Indication: BIPOLAR DISORDER
     Dosage: 25 MG (25 MG, 1 IN 1 DAY), ORAL
     Route: 048
     Dates: start: 20091101
  5. RISPERIDONE [Suspect]
     Indication: BIPOLAR DISORDER
     Dosage: 1 MG (1 MG, 1 IN 1 D), ORAL
     Route: 048
     Dates: start: 20091101
  6. KLONOPIN [Concomitant]
  7. ACTIVELLA [Concomitant]

REACTIONS (7)
  - ABDOMINAL DISCOMFORT [None]
  - BIPOLAR DISORDER [None]
  - DEPRESSION [None]
  - INTRACRANIAL ANEURYSM [None]
  - SEDATION [None]
  - SINUSITIS [None]
  - SOMNOLENCE [None]
